FAERS Safety Report 4718539-8 (Version None)
Quarter: 2005Q3

REPORT INFORMATION
  Report Type: 
  Country: None (occurrence: None)
  Receive Date: 20050720
  Receipt Date: 20050708
  Transmission Date: 20060218
  Serious: Yes (Hospitalization)
  Sender: FDA-Public Use
  Company Number: JP-SANOFI-SYNTHELABO-F01200501247

PATIENT
  Age: 80 Year
  Sex: Male

DRUGS (2)
  1. CLOPIDOGREL BISULFATE [Suspect]
     Dosage: LOADING DOSE 300 MG FOLLOWED BY 75 MG DAILY
     Route: 048
     Dates: start: 20050616, end: 20050616
  2. TICLOPIDINE HCL [Suspect]

REACTIONS (1)
  - RENAL IMPAIRMENT [None]
